FAERS Safety Report 6087184-7 (Version None)
Quarter: 2009Q1

REPORT INFORMATION
  Report Type: 
  Country: None (occurrence: None)
  Receive Date: 20090223
  Receipt Date: 20090216
  Transmission Date: 20090719
  Serious: Yes (Hospitalization)
  Sender: FDA-Public Use
  Company Number: GB-MERCK-0808GBR00088

PATIENT
  Age: 70 Year
  Sex: Male

DRUGS (9)
  1. INVANZ [Suspect]
     Indication: ABDOMINAL SEPSIS
     Route: 041
     Dates: start: 20080725, end: 20080727
  2. BISOPROLOL [Concomitant]
     Indication: ATRIAL FIBRILLATION
     Route: 048
  3. DIGOXIN [Concomitant]
     Indication: ATRIAL FIBRILLATION
     Route: 048
  4. OMEPRAZOLE [Concomitant]
     Route: 048
  5. CODEINE PHOSPHATE [Concomitant]
     Route: 065
  6. ENOXAPARIN SODIUM [Concomitant]
     Route: 065
  7. MAXOLON [Concomitant]
     Route: 065
  8. ACETAMINOPHEN [Concomitant]
     Route: 065
  9. WARFARIN [Concomitant]
     Route: 065

REACTIONS (3)
  - BLISTER [None]
  - DERMATITIS BULLOUS [None]
  - OEDEMA PERIPHERAL [None]
